FAERS Safety Report 10011324 (Version 1)
Quarter: 2014Q1

REPORT INFORMATION
  Report Type: Spontaneous
  Country: US (occurrence: US)
  Receive Date: 20140314
  Receipt Date: 20140314
  Transmission Date: 20141002
  Serious: Yes (Other)
  Sender: FDA-Public Use
  Company Number: US-BAYER-2014-034718

PATIENT
  Age: 42 Year
  Sex: Male

DRUGS (1)
  1. ACETYLSALICYLIC ACID (} 100 MG) [Suspect]
     Dosage: 650 MG, BID
     Route: 048

REACTIONS (2)
  - Analgesic asthma syndrome [Recovering/Resolving]
  - Gastroenteritis eosinophilic [Recovering/Resolving]
